FAERS Safety Report 16291982 (Version 2)
Quarter: 2020Q4

REPORT INFORMATION
  Report Type: Spontaneous
  Country: US (occurrence: US)
  Receive Date: 20190509
  Receipt Date: 20201028
  Transmission Date: 20210113
  Serious: Yes (Other)
  Sender: FDA-Public Use
  Company Number: US-ASTRAZENECA-2019SE63069

PATIENT
  Age: 41 Year
  Sex: Male

DRUGS (69)
  1. PRILOSEC [Suspect]
     Active Substance: OMEPRAZOLE MAGNESIUM
     Indication: DYSPEPSIA
     Route: 048
     Dates: start: 1990, end: 20131215
  2. PERSANTINE [Concomitant]
     Active Substance: DIPYRIDAMOLE
  3. PHOSPHORUS [Concomitant]
     Active Substance: PHOSPHORUS
  4. PLAVIX [Concomitant]
     Active Substance: CLOPIDOGREL BISULFATE
  5. FLOMAX [Concomitant]
     Active Substance: TAMSULOSIN HYDROCHLORIDE
  6. SODIUM CHLORIDE. [Concomitant]
     Active Substance: SODIUM CHLORIDE
  7. POLYETHYLENE GLYCOL [Concomitant]
     Active Substance: POLYETHYLENE GLYCOLS
  8. LORAZEPAM. [Concomitant]
     Active Substance: LORAZEPAM
  9. RENAGEL [Concomitant]
     Active Substance: SEVELAMER HYDROCHLORIDE
  10. FUROSEMIDE. [Concomitant]
     Active Substance: FUROSEMIDE
  11. TYLENOL [Concomitant]
     Active Substance: ACETAMINOPHEN
  12. CRESTOR [Concomitant]
     Active Substance: ROSUVASTATIN CALCIUM
  13. PNEUMOVAX 23 [Concomitant]
     Active Substance: PNEUMOCOCCAL VACCINE, POLYVALENT 23
  14. FOLATE [Concomitant]
     Active Substance: FOLATE SODIUM
  15. CIPROFLOXACIN. [Concomitant]
     Active Substance: CIPROFLOXACIN
  16. AMIODARONE [Concomitant]
     Active Substance: AMIODARONE
  17. SODIUM POLYSTYRENE [Concomitant]
     Active Substance: SODIUM POLYSTYRENE SULFONATE
  18. VALIUM [Concomitant]
     Active Substance: DIAZEPAM
  19. NITROQUICK [Concomitant]
     Active Substance: NITROGLYCERIN
  20. ALPRAZOLAM. [Concomitant]
     Active Substance: ALPRAZOLAM
  21. NEURONTIN [Concomitant]
     Active Substance: GABAPENTIN
  22. FINASTERIDE. [Concomitant]
     Active Substance: FINASTERIDE
  23. VIAGRA [Concomitant]
     Active Substance: SILDENAFIL CITRATE
  24. RANITIDINE. [Concomitant]
     Active Substance: RANITIDINE
  25. CLONIDINE. [Concomitant]
     Active Substance: CLONIDINE
  26. ABSORBASE [Concomitant]
     Active Substance: EMOLLIENTS
  27. ZOLPIDEM TARTRATE. [Concomitant]
     Active Substance: ZOLPIDEM TARTRATE
  28. CELLCEPT [Concomitant]
     Active Substance: MYCOPHENOLATE MOFETIL\MYCOPHENOLATE MOFETIL HYDROCHLORIDE
  29. WARFARIN [Concomitant]
     Active Substance: WARFARIN
  30. ACETAMINOPHEN-COD [Concomitant]
     Active Substance: ACETAMINOPHEN\CODEINE PHOSPHATE
  31. ALLOPURINOL. [Concomitant]
     Active Substance: ALLOPURINOL
  32. MINOCYCLINE [Concomitant]
     Active Substance: MINOCYCLINE HYDROCHLORIDE
  33. COLCHICINE. [Concomitant]
     Active Substance: COLCHICINE
  34. SENSIPAR [Concomitant]
     Active Substance: CINACALCET HYDROCHLORIDE
  35. NEPHRO VITE RX [Concomitant]
     Active Substance: ASCORBIC ACID\BIOTIN\CALCIUM PANTOTHENATE\CYANOCOBALAMIN\FOLIC ACID\NIACINAMIDE\PYRIDOXINE HYDROCHLORIDE\RIBOFLAVIN\THIAMINE MONONITRATE
  36. AMINOPHYLLINE. [Concomitant]
     Active Substance: AMINOPHYLLINE
  37. ASPIRIN. [Concomitant]
     Active Substance: ASPIRIN
  38. CIALIS [Concomitant]
     Active Substance: TADALAFIL
  39. STATIN [Concomitant]
     Active Substance: UNSPECIFIED INGREDIENT
  40. MAALOX ANTACID [Concomitant]
     Active Substance: ALUMINUM HYDROXIDE\DIMETHICONE\MAGNESIUM HYDROXIDE
  41. FERROUS SULFATE. [Concomitant]
     Active Substance: FERROUS SULFATE
  42. MONTELUKAST SOD [Concomitant]
     Active Substance: MONTELUKAST SODIUM
  43. ENOXAPARIN [Concomitant]
     Active Substance: ENOXAPARIN
  44. PRILOSEC [Suspect]
     Active Substance: OMEPRAZOLE MAGNESIUM
     Indication: DYSPEPSIA
     Route: 065
     Dates: start: 20151123
  45. PRILOSEC OTC [Suspect]
     Active Substance: OMEPRAZOLE MAGNESIUM
     Indication: DYSPEPSIA
     Route: 048
  46. PENTOXIFYLLINE. [Concomitant]
     Active Substance: PENTOXIFYLLINE
  47. ZEMPLAR [Concomitant]
     Active Substance: PARICALCITOL
  48. MAGNESIUM OXIDE. [Concomitant]
     Active Substance: MAGNESIUM OXIDE
  49. LYRICA [Concomitant]
     Active Substance: PREGABALIN
  50. ROLAIDS [Concomitant]
     Active Substance: CALCIUM CARBONATE\MAGNESIUM HYDROXIDE
  51. PRAVASTATIN. [Concomitant]
     Active Substance: PRAVASTATIN
  52. ISOSORBIDE. [Concomitant]
     Active Substance: ISOSORBIDE
  53. CLINDAMYCIN. [Concomitant]
     Active Substance: CLINDAMYCIN
  54. RANEXA [Concomitant]
     Active Substance: RANOLAZINE
  55. ONDASETRON [Concomitant]
     Active Substance: ONDANSETRON
  56. PROCARDIA [Concomitant]
     Active Substance: NIFEDIPINE
  57. VYVANSE [Concomitant]
     Active Substance: LISDEXAMFETAMINE DIMESYLATE
  58. CELEXA [Concomitant]
     Active Substance: CITALOPRAM HYDROBROMIDE
  59. CALCITRIOL. [Concomitant]
     Active Substance: CALCITRIOL
  60. INDOMETHACIN. [Concomitant]
     Active Substance: INDOMETHACIN
  61. POTASSIUM CHLORIDE. [Concomitant]
     Active Substance: POTASSIUM CHLORIDE
  62. AMITRIPTYLINE [Concomitant]
     Active Substance: AMITRIPTYLINE
  63. MUCINEX [Concomitant]
     Active Substance: GUAIFENESIN
  64. BRIMONIDINE TARTRATE. [Concomitant]
     Active Substance: BRIMONIDINE TARTRATE
  65. PROGRAF [Concomitant]
     Active Substance: TACROLIMUS
  66. VITAMIN B COMPLEX [Concomitant]
     Active Substance: CYANOCOBALAMIN\DEXPANTHENOL\NIACINAMIDE\PYRIDOXINE HYDROCHLORIDE\RIBOFLAVIN 5^-PHOSPHATE SODIUM\THIAMINE HYDROCHLORIDE\VITAMIN B COMPLEX
  67. TIZANIDINE. [Concomitant]
     Active Substance: TIZANIDINE
  68. ALDIOXA [Concomitant]
     Active Substance: ALDIOXA
  69. HYDRALAZINE [Concomitant]
     Active Substance: HYDRALAZINE HYDROCHLORIDE

REACTIONS (5)
  - End stage renal disease [Unknown]
  - Chronic kidney disease [Not Recovered/Not Resolved]
  - Nephrogenic anaemia [Unknown]
  - Chronic kidney disease-mineral and bone disorder [Unknown]
  - Renal failure [Unknown]

NARRATIVE: CASE EVENT DATE: 1998
